FAERS Safety Report 5592072-6 (Version None)
Quarter: 2008Q1

REPORT INFORMATION
  Report Type: 
  Country: None (occurrence: None)
  Receive Date: 20080115
  Receipt Date: 20080103
  Transmission Date: 20080703
  Serious: Yes (Hospitalization)
  Sender: FDA-Public Use
  Company Number: FR-SANOFI-SYNTHELABO-A02200800021

PATIENT
  Sex: Female

DRUGS (1)
  1. DANATROL [Suspect]
     Indication: SPLENOMEGALY
     Dosage: UNK
     Route: 048
     Dates: end: 20071105

REACTIONS (6)
  - APHASIA [None]
  - CEREBRAL HAEMORRHAGE [None]
  - CEREBRAL VENOUS THROMBOSIS [None]
  - CONVULSION [None]
  - HEMIPLEGIA [None]
  - PERSONALITY CHANGE DUE TO A GENERAL MEDICAL CONDITION [None]
